FAERS Safety Report 19477240 (Version 1)
Quarter: 2021Q2

REPORT INFORMATION
  Report Type: Spontaneous
  Country: US (occurrence: US)
  Receive Date: 20210630
  Receipt Date: 20210630
  Transmission Date: 20210717
  Serious: Yes (Disabling)
  Sender: FDA-Public Use
  Company Number: None

PATIENT
  Age: 75 Year
  Sex: Male

DRUGS (1)
  1. AUBAGIO [Suspect]
     Active Substance: TERIFLUNOMIDE
     Route: 048
     Dates: start: 20210407, end: 20210531

REACTIONS (5)
  - Blood pressure increased [None]
  - Fatigue [None]
  - Skin discolouration [None]
  - Dyspnoea [None]
  - Staphylococcal infection [None]

NARRATIVE: CASE EVENT DATE: 20210408
